FAERS Safety Report 8088730-4 (Version None)
Quarter: 2012Q1

REPORT INFORMATION
  Report Type: 
  Country: None (occurrence: None)
  Receive Date: 20120128
  Receipt Date: 20110608
  Transmission Date: 20120608
  Serious: No
  Sender: FDA-Public Use
  Company Number: US-ABBOTT-11P-163-0730874-00

PATIENT
  Sex: Female
  Weight: 64.468 kg

DRUGS (2)
  1. DICLOFENAC SODIUM [Concomitant]
     Indication: ANKYLOSING SPONDYLITIS
  2. HUMIRA [Suspect]
     Indication: ANKYLOSING SPONDYLITIS
     Route: 058
     Dates: start: 20090101

REACTIONS (6)
  - INJECTION SITE PRURITUS [None]
  - INJECTION SITE PARAESTHESIA [None]
  - INJECTION SITE SWELLING [None]
  - INJECTION SITE ERYTHEMA [None]
  - INJECTION SITE PAIN [None]
  - INJECTION SITE DISCOLOURATION [None]
